FAERS Safety Report 19255091 (Version 2)
Quarter: 2021Q2

REPORT INFORMATION
  Report Type: Spontaneous
  Country: US (occurrence: US)
  Receive Date: 20210513
  Receipt Date: 20210609
  Transmission Date: 20210717
  Serious: Yes (Hospitalization)
  Sender: FDA-Public Use
  Company Number: US-PFIZER INC-2021411916

PATIENT
  Age: 35 Year
  Sex: Female
  Weight: 72.56 kg

DRUGS (2)
  1. LIDOCAINE HCL [Suspect]
     Active Substance: LIDOCAINE HYDROCHLORIDE
     Indication: TENDON DISORDER
     Dosage: 1 ML (1 ML 1% LIDOCAINE+9 ML D5% W)
     Dates: start: 20210401, end: 20210401
  2. SARAPIN [Concomitant]
     Active Substance: SARRACENIA PURPUREA
     Dosage: UNK (INJECTION)
     Dates: start: 20210401, end: 20210401

REACTIONS (1)
  - Pain [Recovered/Resolved]

NARRATIVE: CASE EVENT DATE: 20210401
